FAERS Safety Report 22198862 (Version 2)
Quarter: 2023Q2

REPORT INFORMATION
  Report Type: Report from Study
  Country: US (occurrence: US)
  Receive Date: 20230411
  Receipt Date: 20230508
  Transmission Date: 20230721
  Serious: Yes (Hospitalization, Other)
  Sender: FDA-Public Use
  Company Number: US-ARBOR PHARMACEUTICALS, LLC-US-2023ARB003091

PATIENT
  Sex: Male

DRUGS (8)
  1. TRIPTODUR [Suspect]
     Active Substance: TRIPTORELIN
     Indication: Product used for unknown indication
     Dosage: UNK, SINGLE
     Route: 030
     Dates: start: 20221018, end: 20221018
  2. TRIPTODUR [Suspect]
     Active Substance: TRIPTORELIN
  3. TRIPTODUR [Suspect]
     Active Substance: TRIPTORELIN
  4. CALCITRIOL [Concomitant]
     Active Substance: CALCITRIOL
     Indication: Product used for unknown indication
     Dosage: UNK
  5. FERROUS SULFATE [Concomitant]
     Active Substance: FERROUS SULFATE
     Indication: Product used for unknown indication
     Dosage: UNK
  6. RENVELA [Concomitant]
     Active Substance: SEVELAMER CARBONATE
     Indication: Product used for unknown indication
     Dosage: UNK
  7. ARANESP [Concomitant]
     Active Substance: DARBEPOETIN ALFA
     Indication: Product used for unknown indication
     Dosage: UNK
  8. BACTRIM [Concomitant]
     Active Substance: SULFAMETHOXAZOLE\TRIMETHOPRIM
     Indication: Product used for unknown indication
     Dosage: UNK

REACTIONS (2)
  - Renal transplant [Unknown]
  - Seizure [Unknown]

NARRATIVE: CASE EVENT DATE: 20230101
